FAERS Safety Report 17710229 (Version 4)
Quarter: 2020Q4

REPORT INFORMATION
  Report Type: Spontaneous
  Country: US (occurrence: US)
  Receive Date: 20200427
  Receipt Date: 20201013
  Transmission Date: 20210113
  Serious: No
  Sender: FDA-Public Use
  Company Number: US-SA-2019SA240505

PATIENT

DRUGS (2)
  1. INSULIN GLARGINE [Suspect]
     Active Substance: INSULIN GLARGINE
  2. DUPIXENT [Suspect]
     Active Substance: DUPILUMAB
     Indication: ASTHMA
     Dosage: 300 MG ,OTHER
     Route: 058
     Dates: start: 20190801

REACTIONS (10)
  - Headache [Not Recovered/Not Resolved]
  - Dry mouth [Unknown]
  - Injection site swelling [Unknown]
  - Product use issue [Unknown]
  - Nausea [Not Recovered/Not Resolved]
  - Chest pain [Not Recovered/Not Resolved]
  - Product dose omission issue [Unknown]
  - Tongue discolouration [Unknown]
  - Dry throat [Unknown]
  - Tongue dry [Unknown]

NARRATIVE: CASE EVENT DATE: 20200505
